FAERS Safety Report 8901115 (Version 2)
Quarter: 2013Q1

REPORT INFORMATION
  Report Type: Spontaneous
  Country: DE (occurrence: DE)
  Receive Date: 20121108
  Receipt Date: 20130131
  Transmission Date: 20140127
  Serious: Yes (Life-Threatening, Hospitalization)
  Sender: FDA-Public Use
  Company Number: DE-B.I. PHARMACEUTICALS,INC./RIDGEFIELD-2012-DE-02649DE

PATIENT
  Age: 74 Year
  Sex: Female
  Weight: 77 kg

DRUGS (9)
  1. PRADAXA [Suspect]
     Indication: CEREBRAL INFARCTION
     Dosage: 220 MG
     Route: 048
     Dates: start: 201112
  2. PRADAXA [Suspect]
     Indication: ATRIAL FIBRILLATION
  3. GLIMEPIRID [Concomitant]
     Indication: DIABETES MELLITUS
     Dosage: 2 MG
     Route: 048
  4. FUROSEMID [Concomitant]
     Indication: OEDEMA
     Dosage: 80 MG
     Route: 048
  5. FUROSEMID [Concomitant]
     Indication: CORONARY ARTERY DISEASE
  6. FEMARA [Concomitant]
     Indication: BREAST CANCER
     Dosage: 2.5 MG
  7. DIGITOXIN [Concomitant]
     Indication: ATRIAL FIBRILLATION
     Dosage: 0.07 MG
     Route: 048
  8. BISOPROLOL [Concomitant]
     Indication: ATRIAL FIBRILLATION
     Dosage: 5 MG
     Route: 048
  9. SPIRONOLACTON [Concomitant]
     Indication: CARDIAC FAILURE
     Dosage: 25 MG
     Route: 048

REACTIONS (2)
  - Ischaemic stroke [Unknown]
  - Myocardial infarction [Recovered/Resolved with Sequelae]
